FAERS Safety Report 8116507-X (Version None)
Quarter: 2012Q1

REPORT INFORMATION
  Report Type: 
  Country: None (occurrence: None)
  Receive Date: 20120206
  Receipt Date: 20120127
  Transmission Date: 20120608
  Serious: Yes (Hospitalization)
  Sender: FDA-Public Use
  Company Number: US-BAYER-2011-034632

PATIENT
  Age: 19 Year
  Sex: Female
  Weight: 90.703 kg

DRUGS (3)
  1. ULTRAM [Concomitant]
     Indication: BACK PAIN
     Dosage: UNK UNK, PRN
  2. ULTRAM [Concomitant]
     Indication: PAIN IN EXTREMITY
  3. YAZ [Suspect]
     Indication: MENSTRUATION IRREGULAR
     Dosage: UNK
     Dates: start: 20070720, end: 20070923

REACTIONS (7)
  - CHEST PAIN [None]
  - EMOTIONAL DISTRESS [None]
  - PAIN [None]
  - PULMONARY EMBOLISM [None]
  - GENERAL PHYSICAL HEALTH DETERIORATION [None]
  - ANXIETY [None]
  - DYSPNOEA [None]
